FAERS Safety Report 24904748 (Version 1)
Quarter: 2025Q1

REPORT INFORMATION
  Report Type: Spontaneous
  Country: US (occurrence: US)
  Receive Date: 20250130
  Receipt Date: 20250130
  Transmission Date: 20250409
  Serious: No
  Sender: Harrow Health
  Company Number: US-IMP-2025000070

PATIENT
  Age: 67 Year
  Sex: Female

DRUGS (2)
  1. MAXIDEX [Suspect]
     Active Substance: DEXAMETHASONE
     Indication: Ear pruritus
     Dosage: LEFT EYE
     Route: 001
  2. MAXIDEX [Suspect]
     Active Substance: DEXAMETHASONE
     Indication: Ear pruritus
     Route: 001

REACTIONS (2)
  - Off label use [Unknown]
  - Product odour abnormal [Unknown]
